FAERS Safety Report 5086667-6 (Version None)
Quarter: 2006Q3

REPORT INFORMATION
  Report Type: 
  Country: None (occurrence: None)
  Receive Date: 20060823
  Receipt Date: 20051020
  Transmission Date: 20061208
  Serious: No
  Sender: FDA-Public Use
  Company Number: US-GLAXOSMITHKLINE-A0579243A

PATIENT
  Age: 73 Year
  Sex: Female

DRUGS (1)
  1. MALARONE [Suspect]
     Indication: MALARIA PROPHYLAXIS
     Dosage: 1TAB PER DAY
     Route: 048
     Dates: start: 20050915, end: 20051001

REACTIONS (5)
  - ERYTHEMA [None]
  - EYELID EXFOLIATION [None]
  - EYELIDS PRURITUS [None]
  - FACE OEDEMA [None]
  - SWELLING [None]
